FAERS Safety Report 9529644 (Version 1)
Quarter: 2013Q3

REPORT INFORMATION
  Report Type: Spontaneous
  Country: LB (occurrence: LB)
  Receive Date: 20130917
  Receipt Date: 20130917
  Transmission Date: 20140515
  Serious: Yes (Death, Hospitalization)
  Sender: FDA-Public Use
  Company Number: LB-ELI_LILLY_AND_COMPANY-LB201309004197

PATIENT
  Age: 51 Year
  Sex: Male
  Weight: 74 kg

DRUGS (7)
  1. PEMETREXED [Suspect]
     Indication: LUNG NEOPLASM MALIGNANT
     Dosage: 1 G, CYCLICAL
     Route: 042
     Dates: start: 20130111, end: 20130710
  2. FOLIC ACID [Concomitant]
     Dosage: 5 MG, UNK
  3. VITAMIN B12 [Concomitant]
  4. LASIX [Concomitant]
     Dosage: 40 MG, QOD
  5. NEXIUM [Concomitant]
     Dosage: 40 MG, QOD
  6. DEPAKINE [Concomitant]
     Indication: METASTASES TO CENTRAL NERVOUS SYSTEM
     Dosage: 500 MG, BID
  7. CHRONO INDOCID [Concomitant]

REACTIONS (4)
  - Febrile neutropenia [Fatal]
  - Multi-organ failure [Unknown]
  - Pancytopenia [Unknown]
  - Skin exfoliation [Unknown]
